FAERS Safety Report 24310172 (Version 1)
Quarter: 2024Q3

REPORT INFORMATION
  Report Type: Report from Study
  Country: US (occurrence: None)
  Receive Date: 20240912
  Receipt Date: 20240912
  Transmission Date: 20241017
  Serious: Yes (Hospitalization)
  Sender: ASTRAZENECA
  Company Number: 2024A205464

PATIENT
  Sex: Female

DRUGS (1)
  1. LYNPARZA [Suspect]
     Active Substance: OLAPARIB
     Route: 048
     Dates: start: 20240107

REACTIONS (8)
  - Illness [Unknown]
  - Vomiting [Unknown]
  - Renal failure [Unknown]
  - Dehydration [Unknown]
  - Pain [Unknown]
  - Fatigue [Unknown]
  - Brain fog [Unknown]
  - Nausea [Unknown]
